FAERS Safety Report 4330614-9 (Version None)
Quarter: 2004Q2

REPORT INFORMATION
  Report Type: 
  Country: None (occurrence: None)
  Receive Date: 20040402
  Receipt Date: 20040325
  Transmission Date: 20050107
  Serious: Yes (Hospitalization)
  Sender: FDA-Public Use
  Company Number: IT-ROCHE-362659

PATIENT
  Age: 41 Year
  Sex: Male

DRUGS (3)
  1. RIBAVIRIN [Suspect]
     Route: 065
     Dates: start: 20011109
  2. PEG-INTERFERON ALFA 2B [Suspect]
     Route: 065
     Dates: start: 20011115
  3. ACETAMINOPHEN [Concomitant]

REACTIONS (5)
  - ASTHENIA [None]
  - GENERALISED OEDEMA [None]
  - HYPOTENSION [None]
  - NEPHROTIC SYNDROME [None]
  - RENAL DISORDER [None]
